FAERS Safety Report 16170109 (Version 1)
Quarter: 2019Q2

REPORT INFORMATION
  Report Type: Spontaneous
  Country: US (occurrence: US)
  Receive Date: 20190305
  Receipt Date: 20190305
  Transmission Date: 20190711
  Serious: No
  Sender: FDA-Public Use
  Company Number: None

PATIENT
  Age: 70 Year
  Sex: Male

DRUGS (5)
  1. FLUTICASONE. [Concomitant]
     Active Substance: FLUTICASONE
  2. CLARITIN [Concomitant]
     Active Substance: LORATADINE
  3. LUPRON [Concomitant]
     Active Substance: LEUPROLIDE ACETATE
  4. PREDNISONE. [Concomitant]
     Active Substance: PREDNISONE
  5. ZYTIGA [Suspect]
     Active Substance: ABIRATERONE ACETATE
     Indication: PROSTATE CANCER
     Route: 048
     Dates: start: 20181106

REACTIONS (1)
  - Weight increased [None]
